FAERS Safety Report 7785547-2 (Version None)
Quarter: 2011Q3

REPORT INFORMATION
  Report Type: 
  Country: None (occurrence: None)
  Receive Date: 20110929
  Receipt Date: 20110104
  Transmission Date: 20111222
  Serious: No
  Sender: FDA-Public Use
  Company Number: US-GLAXOSMITHKLINE-A0902828A

PATIENT
  Age: 23 Year
  Sex: Male

DRUGS (2)
  1. RELENZA [Suspect]
     Indication: INFLUENZA
     Dosage: 1PUFF SINGLE DOSE
     Route: 055
     Dates: start: 20101227, end: 20101227
  2. NAPROXEN (ALEVE) [Concomitant]

REACTIONS (2)
  - NAUSEA [None]
  - VOMITING [None]
